FAERS Safety Report 19348969 (Version 1)
Quarter: 2021Q2

REPORT INFORMATION
  Report Type: Spontaneous
  Country: US (occurrence: US)
  Receive Date: 20210529
  Receipt Date: 20210529
  Transmission Date: 20210717
  Serious: Yes (Life-Threatening, Disabling, Other)
  Sender: FDA-Public Use
  Company Number: None

PATIENT
  Age: 16 Year
  Sex: Male
  Weight: 65.25 kg

DRUGS (3)
  1. TACROLIMUS OINTMENT 0.003% [Suspect]
     Active Substance: TACROLIMUS
     Indication: ECZEMA
     Route: 061
     Dates: start: 20120501, end: 20210415
  2. PREDNISONE. [Concomitant]
     Active Substance: PREDNISONE
  3. STEROIDS [Concomitant]
     Active Substance: UNSPECIFIED INGREDIENT

REACTIONS (5)
  - Neuralgia [None]
  - Erythema [None]
  - Pruritus [None]
  - Skin weeping [None]
  - Steroid withdrawal syndrome [None]

NARRATIVE: CASE EVENT DATE: 20210415
